FAERS Safety Report 4277181-6 (Version None)
Quarter: 2004Q1

REPORT INFORMATION
  Report Type: 
  Country: None (occurrence: None)
  Receive Date: 20040120
  Receipt Date: 20040107
  Transmission Date: 20041129
  Serious: Yes (Life-Threatening, Hospitalization, Other)
  Sender: FDA-Public Use
  Company Number: 102682ISR

PATIENT
  Age: 52 Year
  Sex: Female

DRUGS (3)
  1. GLATIRAMER ACETATE [Suspect]
     Indication: MULTIPLE SCLEROSIS
     Dosage: 20 MILLIGRAM; SUBCUTANEOUS
     Route: 058
     Dates: start: 20020401, end: 20030601
  2. INTERFERON BETA [Suspect]
     Indication: MULTIPLE SCLEROSIS
     Dates: end: 20020401
  3. TRAMADOL HYDROCHLORIDE [Concomitant]

REACTIONS (3)
  - MEDIASTINAL MASS [None]
  - PLEURAL EFFUSION [None]
  - PRECURSOR T-LYMPHOBLASTIC LYMPHOMA/LEUKAEMIA [None]
